FAERS Safety Report 6550058-9 (Version None)
Quarter: 2010Q1

REPORT INFORMATION
  Report Type: 
  Country: None (occurrence: None)
  Receive Date: 20100119
  Receipt Date: 20100105
  Transmission Date: 20100710
  Serious: Yes (Other)
  Sender: FDA-Public Use
  Company Number: JHP201000006

PATIENT
  Age: 40 Year
  Sex: Female

DRUGS (5)
  1. PITOCIN [Suspect]
     Dosage: 5 OR 10 UNITS OVER 1 MINUTE, INTRAVENOUS
     Route: 042
  2. ANESTHESIA [Concomitant]
  3. EPHEDRINE (EPHEDRINE HYDROCHLORIDE) [Concomitant]
  4. RINGERS LACTATE (CALCIUM CHLORIDE ANHYDROUS, POTASSIUM CHLORIDE, SODIU [Concomitant]
  5. OXYGEN (OXYGEN) [Concomitant]

REACTIONS (3)
  - DRUG EXPOSURE DURING PREGNANCY [None]
  - HYPOTENSION [None]
  - MYOCARDIAL ISCHAEMIA [None]
